FAERS Safety Report 17591688 (Version 1)
Quarter: 2020Q1

REPORT INFORMATION
  Report Type: Spontaneous
  Country: US (occurrence: US)
  Receive Date: 20200327
  Receipt Date: 20200327
  Transmission Date: 20200409
  Serious: No
  Sender: FDA-Public Use
  Company Number: NVSC2020US085149

PATIENT
  Age: 72 Year
  Sex: Male

DRUGS (4)
  1. ENOXAPARIN [Suspect]
     Active Substance: ENOXAPARIN
     Dosage: 60 MG, Q12H
     Route: 058
  2. ENOXAPARIN [Suspect]
     Active Substance: ENOXAPARIN
     Dosage: 40 MG, Q12H
     Route: 058
  3. ENOXAPARIN [Suspect]
     Active Substance: ENOXAPARIN
     Indication: PRODUCT USED FOR UNKNOWN INDICATION
     Dosage: 80 MG, Q12H
     Route: 058
  4. ASPIRIN. [Concomitant]
     Active Substance: ASPIRIN
     Indication: PRODUCT USED FOR UNKNOWN INDICATION
     Dosage: 81 MG, QD (LOW DOSE ASPIRIN) BEFORE SURGERY
     Route: 065

REACTIONS (2)
  - Haematoma [Unknown]
  - Contusion [Unknown]
